FAERS Safety Report 10993161 (Version 1)
Quarter: 2015Q2

REPORT INFORMATION
  Report Type: Not Available
  Country: US (occurrence: US)
  Receive Date: 20150407
  Receipt Date: 20150407
  Transmission Date: 20150821
  Serious: No
  Sender: FDA-Public Use
  Company Number: US-LUPIN PHARMACEUTICALS INC.-E2B_00003125

PATIENT
  Sex: Female
  Weight: 93.07 kg

DRUGS (1)
  1. CEFUROXIME AXETIL. [Suspect]
     Active Substance: CEFUROXIME AXETIL
     Indication: INFECTION
     Dates: start: 20150108

REACTIONS (3)
  - Infection [Unknown]
  - Medication residue present [Unknown]
  - Drug ineffective [Unknown]
